FAERS Safety Report 12291104 (Version 2)
Quarter: 2016Q2

REPORT INFORMATION
  Report Type: Spontaneous
  Country: JP (occurrence: JP)
  Receive Date: 20160421
  Receipt Date: 20160602
  Transmission Date: 20160815
  Serious: Yes (Hospitalization)
  Sender: FDA-Public Use
  Company Number: JP-CELGENEUS-JPN-2016044683

PATIENT
  Age: 58 Year
  Sex: Female

DRUGS (3)
  1. TSUMURA MAOBUSHISAISHINTO EXTRACT [Concomitant]
     Indication: PRODUCT USED FOR UNKNOWN INDICATION
     Route: 048
     Dates: start: 20160220
  2. ABRAXANE [Suspect]
     Active Substance: PACLITAXEL
     Indication: BREAST CANCER
     Dosage: 130 MILLIGRAM
     Route: 041
     Dates: start: 20160311, end: 20160325
  3. SHAKUYAKUKANZOTO [Concomitant]
     Active Substance: HERBALS
     Indication: PRODUCT USED FOR UNKNOWN INDICATION
     Route: 048
     Dates: start: 20160220

REACTIONS (2)
  - Intentional product misuse [Unknown]
  - Diffuse alveolar damage [Recovering/Resolving]

NARRATIVE: CASE EVENT DATE: 20160311
